FAERS Safety Report 10470273 (Version 1)
Quarter: 2014Q3

REPORT INFORMATION
  Report Type: Spontaneous
  Country: CN (occurrence: CN)
  Receive Date: 20140923
  Receipt Date: 20140923
  Transmission Date: 20150326
  Serious: Yes (Other)
  Sender: FDA-Public Use
  Company Number: CN-JNJFOC-20140918475

PATIENT
  Age: 64 Year
  Sex: Male

DRUGS (6)
  1. ULTRACET [Suspect]
     Active Substance: ACETAMINOPHEN\TRAMADOL HYDROCHLORIDE
     Indication: LUMBAR VERTEBRAL FRACTURE
     Dosage: 1 TABLET TWICE A DAY
     Route: 048
     Dates: start: 20130307, end: 20130307
  2. MECOBALAMIN [Concomitant]
     Active Substance: METHYLCOBALAMIN
     Indication: LUMBAR VERTEBRAL FRACTURE
     Route: 065
     Dates: start: 20130307
  3. MECOBALAMIN [Concomitant]
     Active Substance: METHYLCOBALAMIN
     Indication: NEURALGIA
     Route: 065
     Dates: start: 20130307
  4. ULTRACET [Suspect]
     Active Substance: ACETAMINOPHEN\TRAMADOL HYDROCHLORIDE
     Indication: NEURALGIA
     Dosage: 1 TABLET TWICE A DAY
     Route: 048
     Dates: start: 20130307, end: 20130307
  5. GABAPENTIN. [Suspect]
     Active Substance: GABAPENTIN
     Indication: LUMBAR VERTEBRAL FRACTURE
     Route: 065
     Dates: start: 20130307
  6. GABAPENTIN. [Suspect]
     Active Substance: GABAPENTIN
     Indication: NEURALGIA
     Route: 065
     Dates: start: 20130307

REACTIONS (4)
  - Dizziness [Recovering/Resolving]
  - Gait disturbance [Recovering/Resolving]
  - Somnolence [Recovering/Resolving]
  - Asthenia [Recovering/Resolving]

NARRATIVE: CASE EVENT DATE: 20130308
